APPROVED DRUG PRODUCT: FINGOLIMOD HYDROCHLORIDE
Active Ingredient: FINGOLIMOD HYDROCHLORIDE
Strength: EQ 0.5MG BASE
Dosage Form/Route: CAPSULE;ORAL
Application: A208005 | Product #001
Applicant: MYLAN PHARMACEUTICALS INC
Approved: Jan 19, 2021 | RLD: No | RS: No | Type: DISCN